FAERS Safety Report 8894083 (Version 1)
Quarter: 2012Q4

REPORT INFORMATION
  Report Type: 
  Country: FR (occurrence: FR)
  Receive Date: 20121108
  Receipt Date: 20121108
  Transmission Date: 20130627
  Serious: Yes (Hospitalization)
  Sender: FDA-Public Use
  Company Number: FR-PFIZER INC-2012275739

PATIENT
  Age: 65 Year
  Sex: Male

DRUGS (8)
  1. TAHOR [Suspect]
     Dosage: 80 mg, daily
     Route: 048
     Dates: start: 20120206
  2. TAHOR [Suspect]
     Dosage: 80 mg, daily
     Route: 048
     Dates: start: 20120405, end: 20120406
  3. COVERSYL [Suspect]
     Dosage: 2.5 mg, daily
     Route: 048
     Dates: end: 20120406
  4. PRAVASTATIN [Concomitant]
     Dosage: 40 mg, UNK
     Dates: end: 20120206
  5. ACEBUTOLOL [Concomitant]
     Dosage: 200 mg, UNK
  6. KARDEGIC [Concomitant]
     Dosage: UNK
  7. ESOMEPRAZOLE [Concomitant]
     Dosage: 20 mg, UNK
  8. CORTANCYL [Concomitant]

REACTIONS (8)
  - Urticaria [Recovered/Resolved]
  - Lip oedema [Recovered/Resolved]
  - Tongue oedema [Recovered/Resolved]
  - Malaise [Recovered/Resolved]
  - Hypotension [Recovered/Resolved]
  - Loss of consciousness [Recovered/Resolved]
  - Chest pain [Recovered/Resolved]
  - C-reactive protein increased [Recovered/Resolved]
